FAERS Safety Report 25409724 (Version 1)
Quarter: 2025Q2

REPORT INFORMATION
  Report Type: Spontaneous
  Country: US (occurrence: US)
  Receive Date: 20250607
  Receipt Date: 20250607
  Transmission Date: 20250716
  Serious: No
  Sender: DIFGEN PHARMACEUTICALS LLC
  Company Number: US-Difgen-012003

PATIENT

DRUGS (1)
  1. BUPRENORPHINE [Suspect]
     Active Substance: BUPRENORPHINE
     Indication: Pain
     Route: 062

REACTIONS (5)
  - Product substitution issue [Unknown]
  - Product adhesion issue [Unknown]
  - Application site burn [Unknown]
  - Application site erythema [Unknown]
  - Pain [Not Recovered/Not Resolved]
